FAERS Safety Report 20955000 (Version 2)
Quarter: 2022Q2

REPORT INFORMATION
  Report Type: Report from Study
  Country: US (occurrence: US)
  Receive Date: 20220614
  Receipt Date: 20220630
  Transmission Date: 20220721
  Serious: Yes (Other)
  Sender: FDA-Public Use
  Company Number: US-ABBVIE-22K-163-4430329-00

PATIENT
  Sex: Male

DRUGS (1)
  1. LUPRON DEPOT [Suspect]
     Active Substance: LEUPROLIDE ACETATE
     Indication: Product used for unknown indication
     Route: 065

REACTIONS (6)
  - Prostatic operation [Recovering/Resolving]
  - Procedural pain [Recovering/Resolving]
  - Sluggishness [Unknown]
  - Injection site pain [Recovered/Resolved]
  - Hot flush [Recovered/Resolved]
  - Fatigue [Recovering/Resolving]
